FAERS Safety Report 7787781-4 (Version None)
Quarter: 2011Q3

REPORT INFORMATION
  Report Type: 
  Country: None (occurrence: None)
  Receive Date: 20110929
  Receipt Date: 20110916
  Transmission Date: 20111222
  Serious: Yes (Hospitalization)
  Sender: FDA-Public Use
  Company Number: GB-MYLANLABS-2011S1019329

PATIENT
  Age: 10 Month
  Sex: Male

DRUGS (3)
  1. DIMETINDENE MALEATE [Concomitant]
     Indication: DIFFUSE CUTANEOUS MASTOCYTOSIS
  2. KETOTIFEN FUMARATE [Suspect]
     Indication: DIFFUSE CUTANEOUS MASTOCYTOSIS
  3. CETIRIZINE HCL [Suspect]
     Indication: DIFFUSE CUTANEOUS MASTOCYTOSIS

REACTIONS (6)
  - FLUSHING [None]
  - FACE OEDEMA [None]
  - OFF LABEL USE [None]
  - BLISTER [None]
  - DIARRHOEA [None]
  - OEDEMA PERIPHERAL [None]
